FAERS Safety Report 12116652 (Version 2)
Quarter: 2017Q4

REPORT INFORMATION
  Report Type: Spontaneous
  Country: US (occurrence: US)
  Receive Date: 20160225
  Receipt Date: 20171011
  Transmission Date: 20180320
  Serious: No
  Sender: FDA-Public Use
  Company Number: US-BIOGEN-2007BI006741

PATIENT
  Age: 64 Year
  Sex: Male

DRUGS (9)
  1. FLOMAX [Concomitant]
     Active Substance: TAMSULOSIN HYDROCHLORIDE
     Indication: PRODUCT USED FOR UNKNOWN INDICATION
     Route: 065
  2. AMPYRA [Concomitant]
     Active Substance: DALFAMPRIDINE
     Indication: MULTIPLE SCLEROSIS
     Route: 048
  3. AMBIEN [Concomitant]
     Active Substance: ZOLPIDEM TARTRATE
     Indication: PRODUCT USED FOR UNKNOWN INDICATION
     Route: 065
  4. COPAXONE [Concomitant]
     Active Substance: GLATIRAMER ACETATE
     Indication: PRODUCT USED FOR UNKNOWN INDICATION
     Route: 065
  5. FINASTERIDE. [Concomitant]
     Active Substance: FINASTERIDE
     Indication: PRODUCT USED FOR UNKNOWN INDICATION
     Route: 065
  6. TYSABRI [Suspect]
     Active Substance: NATALIZUMAB
     Indication: MULTIPLE SCLEROSIS
     Dosage: INFUSED FOR ONE HOUR
     Route: 042
     Dates: start: 20070123, end: 20070321
  7. GABAPENTIN. [Concomitant]
     Active Substance: GABAPENTIN
     Indication: PRODUCT USED FOR UNKNOWN INDICATION
     Route: 065
  8. LEXAPRO [Concomitant]
     Active Substance: ESCITALOPRAM OXALATE
     Indication: PRODUCT USED FOR UNKNOWN INDICATION
     Route: 065
  9. TYSABRI [Suspect]
     Active Substance: NATALIZUMAB
     Dosage: INFUSED FOR ONE HOUR
     Route: 042
     Dates: start: 20070123, end: 20091223

REACTIONS (9)
  - Tremor [Recovered/Resolved]
  - Sensory disturbance [Recovered/Resolved]
  - Drug specific antibody [Unknown]
  - Adverse drug reaction [Recovered/Resolved]
  - Back pain [Recovered/Resolved]
  - Chills [Recovered/Resolved]
  - Infusion related reaction [Recovered/Resolved]
  - Antibody test abnormal [Recovered/Resolved]
  - Hypoaesthesia [Not Recovered/Not Resolved]

NARRATIVE: CASE EVENT DATE: 20070123
